FAERS Safety Report 9457913 (Version 2)
Quarter: 2013Q3

REPORT INFORMATION
  Report Type: Spontaneous
  Country: JP (occurrence: JP)
  Receive Date: 20130814
  Receipt Date: 20130828
  Transmission Date: 20140515
  Serious: Yes (Death, Hospitalization)
  Sender: FDA-Public Use
  Company Number: JP-ASTELLAS-2013US008467

PATIENT
  Age: 72 Year
  Sex: Female

DRUGS (3)
  1. TARCEVA [Suspect]
     Indication: NON-SMALL CELL LUNG CANCER
     Dosage: 150 MG, UID/QD
     Route: 048
     Dates: start: 20130603, end: 20130711
  2. TARCEVA [Suspect]
     Dosage: 100 MG, UID/QD
     Route: 048
     Dates: start: 20130520, end: 20130602
  3. GEMCITABINE                        /01215702/ [Concomitant]
     Indication: LUNG ADENOCARCINOMA
     Dosage: UNK
     Route: 042
     Dates: start: 20130430, end: 201305

REACTIONS (5)
  - Incorrect dose administered [Unknown]
  - Interstitial lung disease [Fatal]
  - Atypical pneumonia [Fatal]
  - Pneumocystis jirovecii pneumonia [Fatal]
  - Lung adenocarcinoma [Fatal]
